FAERS Safety Report 26013811 (Version 1)
Quarter: 2025Q4

REPORT INFORMATION
  Report Type: Report from Study
  Country: US (occurrence: US)
  Receive Date: 20251107
  Receipt Date: 20251107
  Transmission Date: 20260118
  Serious: Yes (Hospitalization, Other)
  Sender: JAZZ
  Company Number: US-JAZZ PHARMACEUTICALS-2025-US-025205

PATIENT
  Sex: Female

DRUGS (6)
  1. XYWAV [Suspect]
     Active Substance: CALCIUM OXYBATE\MAGNESIUM OXYBATE\POTASSIUM OXYBATE\SODIUM OXYBATE
     Indication: Narcolepsy
  2. SYNTHROID [Concomitant]
     Active Substance: LEVOTHYROXINE SODIUM
     Dosage: UNK
  3. CALCIUM CARBONATE\CHOLECALCIFEROL [Concomitant]
     Active Substance: CALCIUM CARBONATE\CHOLECALCIFEROL
     Dosage: UNK UNK, OTHER
  4. OSTEO BI-FLEX EASE [Concomitant]
     Dosage: 0010 FREQUENCY: OTH
  5. ADDERALL [Concomitant]
     Active Substance: AMPHETAMINE ASPARTATE\AMPHETAMINE SULFATE\DEXTROAMPHETAMINE SACCHARATE\DEXTROAMPHETAMINE SULFATE
     Dosage: 0000
  6. ELIQUIS [Concomitant]
     Active Substance: APIXABAN
     Dosage: 0000

REACTIONS (7)
  - Accidental overdose [Unknown]
  - Fall [Unknown]
  - Unresponsive to stimuli [Unknown]
  - Skin laceration [Unknown]
  - Product dose omission issue [Unknown]
  - Product administration interrupted [Unknown]
  - Wrong technique in product usage process [Unknown]
